FAERS Safety Report 17464119 (Version 1)
Quarter: 2020Q1

REPORT INFORMATION
  Report Type: Spontaneous
  Country: IN (occurrence: IN)
  Receive Date: 20200226
  Receipt Date: 20200226
  Transmission Date: 20200409
  Serious: Yes (Hospitalization)
  Sender: FDA-Public Use
  Company Number: IN-MYLANLABS-2020M1020781

PATIENT
  Age: 12 Year
  Sex: Male
  Weight: 20 kg

DRUGS (3)
  1. ROPIVACAINE. [Concomitant]
     Active Substance: ROPIVACAINE HYDROCHLORIDE
     Indication: SPINAL ANAESTHESIA
     Dosage: 15 MILLILITER
     Route: 008
  2. PREDNISOLONE. [Suspect]
     Active Substance: PREDNISOLONE
     Indication: PANCYTOPENIA
     Dosage: FOR 4 WEEKS
     Route: 048
  3. HYDROCORTISONE. [Suspect]
     Active Substance: HYDROCORTISONE
     Indication: PANCYTOPENIA
     Dosage: STRESS DOSE
     Route: 065

REACTIONS (1)
  - Posterior reversible encephalopathy syndrome [Recovering/Resolving]
